FAERS Safety Report 9921188 (Version 2)
Quarter: 2014Q1

REPORT INFORMATION
  Report Type: Report from Study
  Country: CA (occurrence: CA)
  Receive Date: 20140225
  Receipt Date: 20140228
  Transmission Date: 20141002
  Serious: Yes (Death)
  Sender: FDA-Public Use
  Company Number: CA-JNJFOC-20140213420

PATIENT
  Sex: Female

DRUGS (2)
  1. ACETAMINOPHEN [Suspect]
     Route: 065
  2. ACETAMINOPHEN [Suspect]
     Indication: ARTHRITIS
     Dosage: GIVEN OVERTIME, 8 PER DAY
     Route: 065
     Dates: start: 19940105, end: 19940111

REACTIONS (4)
  - Streptococcal sepsis [Fatal]
  - Emphysema [Fatal]
  - Pneumonia streptococcal [Fatal]
  - Cardiac failure congestive [Fatal]
